FAERS Safety Report 23355013 (Version 1)
Quarter: 2024Q1

REPORT INFORMATION
  Report Type: Report from Study
  Country: TW (occurrence: TW)
  Receive Date: 20240101
  Receipt Date: 20240101
  Transmission Date: 20240410
  Serious: Yes (Hospitalization)
  Sender: FDA-Public Use
  Company Number: TW-ABBVIE-5564585

PATIENT
  Age: 76 Year
  Sex: Female
  Weight: 39 kg

DRUGS (1)
  1. HUMIRA [Suspect]
     Active Substance: ADALIMUMAB
     Indication: Rheumatoid arthritis
     Route: 058
     Dates: start: 20220406, end: 20231122

REACTIONS (16)
  - Pneumonia [Recovering/Resolving]
  - Hepatitis [Unknown]
  - Respiratory failure [Unknown]
  - Septic shock [Unknown]
  - Acute kidney injury [Unknown]
  - C-reactive protein increased [Unknown]
  - Leukocytosis [Unknown]
  - Ketoacidosis [Unknown]
  - Respiratory acidosis [Unknown]
  - Wheezing [Unknown]
  - Nausea [Unknown]
  - Cold sweat [Unknown]
  - Vomiting [Unknown]
  - Hyperglycaemia [Unknown]
  - Bronchospasm [Unknown]
  - Atrial fibrillation [Unknown]

NARRATIVE: CASE EVENT DATE: 20231208
